FAERS Safety Report 6633378-9 (Version None)
Quarter: 2010Q1

REPORT INFORMATION
  Report Type: 
  Country: None (occurrence: None)
  Receive Date: 20100312
  Receipt Date: 20100301
  Transmission Date: 20100710
  Serious: Yes (Hospitalization, Other)
  Sender: FDA-Public Use
  Company Number: JP-PFIZER INC-2010006917

PATIENT
  Age: 60 Year
  Sex: Female

DRUGS (15)
  1. GABAPEN [Suspect]
     Indication: EPILEPSY
     Dosage: 600 MG, 3X/DAY
     Route: 048
     Dates: start: 20091227, end: 20091229
  2. GABAPEN [Suspect]
     Dosage: 1200 MG, 3X/DAY
     Dates: start: 20091229, end: 20091231
  3. GABAPEN [Suspect]
     Dosage: 1800 MG, 3X/DAY
     Dates: start: 20091231
  4. PHENOBARBITAL TAB [Concomitant]
     Dates: end: 20091225
  5. HOMOCLOMIN [Concomitant]
     Route: 048
  6. ALLELOCK [Concomitant]
     Route: 048
  7. GANATON [Concomitant]
     Route: 048
  8. ALUMINIUM HYDROXIDE, MAGNESIUM HYDROXIDE [Concomitant]
     Route: 048
  9. SELBEX [Concomitant]
     Route: 048
  10. TAKEPRON [Concomitant]
     Route: 048
  11. DEPAKENE [Concomitant]
     Indication: EPILEPSY
     Route: 048
     Dates: start: 20060101, end: 20091226
  12. MEROPENEM [Concomitant]
     Dosage: 10.5 G, 3X/DAY
     Dates: start: 20100114, end: 20100119
  13. DOPAMINE HYDROCHLORIDE [Concomitant]
     Dosage: 5 ML,Q HOUR
     Dates: start: 20100114, end: 20100119
  14. NEU-UP [Concomitant]
     Dosage: 50 UG, 1X/DAY
     Dates: start: 20100114, end: 20100119
  15. PRODIF [Concomitant]
     Dosage: 200 MG,DAY

REACTIONS (4)
  - AGRANULOCYTOSIS [None]
  - PNEUMONIA [None]
  - SEPSIS [None]
  - THROMBOCYTOPENIA [None]
